FAERS Safety Report 25224736 (Version 1)
Quarter: 2025Q2

REPORT INFORMATION
  Report Type: Spontaneous
  Country: US (occurrence: US)
  Receive Date: 20250422
  Receipt Date: 20250422
  Transmission Date: 20250717
  Serious: No
  Sender: AMGEN
  Company Number: US-AMGEN-USASP2025077953

PATIENT
  Age: 59 Year
  Sex: Female

DRUGS (31)
  1. OTEZLA [Suspect]
     Active Substance: APREMILAST
     Indication: Psoriasis
     Route: 048
     Dates: start: 202502, end: 202502
  2. ACITRETIN [Concomitant]
     Active Substance: ACITRETIN
  3. LORAZEPAM [Concomitant]
     Active Substance: LORAZEPAM
  4. TALTZ [Concomitant]
     Active Substance: IXEKIZUMAB
  5. ONDANSETRON [Concomitant]
     Active Substance: ONDANSETRON
  6. TRAZODONE [Concomitant]
     Active Substance: TRAZODONE HYDROCHLORIDE
  7. ERYTHROMYCIN [Concomitant]
     Active Substance: ERYTHROMYCIN
  8. SENNA [Concomitant]
     Active Substance: SENNOSIDES
  9. BACLOFEN [Concomitant]
     Active Substance: BACLOFEN
  10. VITAMIN D3 [Concomitant]
     Active Substance: CHOLECALCIFEROL
  11. HYDROXYZINE PAMOATE [Concomitant]
     Active Substance: HYDROXYZINE PAMOATE
  12. ATROPINE\DIPHENOXYLATE [Concomitant]
     Active Substance: ATROPINE\DIPHENOXYLATE
  13. FLUTICASONE [Concomitant]
     Active Substance: FLUTICASONE
  14. ATORVASTATIN [Concomitant]
     Active Substance: ATORVASTATIN
  15. CALCIPOTRIENE [Concomitant]
     Active Substance: CALCIPOTRIENE
  16. CYCLOBENZAPRINE [Concomitant]
     Active Substance: CYCLOBENZAPRINE
  17. CULTURELLE [Concomitant]
     Active Substance: LACTOBACILLUS RHAMNOSUS
  18. VITAMIN B12 [Concomitant]
     Active Substance: CYANOCOBALAMIN
  19. TRULANCE [Concomitant]
     Active Substance: PLECANATIDE
  20. CLOBETASOL [Concomitant]
     Active Substance: CLOBETASOL
  21. POLYETHYLENE GLYCOL [Concomitant]
     Active Substance: POLYETHYLENE GLYCOL
  22. OMEPRAZOLE [Concomitant]
     Active Substance: OMEPRAZOLE
  23. SULFASALAZINE [Concomitant]
     Active Substance: SULFASALAZINE
  24. LORATADINE [Concomitant]
     Active Substance: LORATADINE
  25. KETOCONAZOLE [Concomitant]
     Active Substance: KETOCONAZOLE
  26. BETAMETHASONE [Concomitant]
     Active Substance: BETAMETHASONE
  27. FOLIC ACID [Concomitant]
     Active Substance: FOLIC ACID
  28. IRON [Concomitant]
     Active Substance: IRON
  29. EUFLEXXA [Concomitant]
     Active Substance: HYALURONATE SODIUM
  30. MAGNESIUM [Concomitant]
     Active Substance: MAGNESIUM
  31. MELATONIN [Concomitant]
     Active Substance: MELATONIN

REACTIONS (1)
  - Therapy cessation [Unknown]

NARRATIVE: CASE EVENT DATE: 20250201
